FAERS Safety Report 8776477 (Version 1)
Quarter: 2012Q4

REPORT INFORMATION
  Report Type: 
  Country: US (occurrence: US)
  Receive Date: 20120910
  Receipt Date: 20120910
  Transmission Date: 20130627
  Serious: No
  Sender: FDA-Public Use
  Company Number: PHEH2012US017438

PATIENT

DRUGS (2)
  1. TASIGNA [Suspect]
  2. SINGULAIR [Interacting]

REACTIONS (1)
  - Drug interaction [Unknown]
